FAERS Safety Report 24886699 (Version 1)
Quarter: 2025Q1

REPORT INFORMATION
  Report Type: Spontaneous
  Country: CN (occurrence: CN)
  Receive Date: 20250126
  Receipt Date: 20250126
  Transmission Date: 20250409
  Serious: Yes (Other)
  Sender: JOHNSON AND JOHNSON
  Company Number: CN-BAYER-2025A009550

PATIENT
  Age: 77 Year
  Sex: Male
  Weight: 69 kg

DRUGS (2)
  1. XARELTO [Suspect]
     Active Substance: RIVAROXABAN
     Indication: Atrial fibrillation
     Dosage: 10 MG, QD
     Route: 048
     Dates: start: 20240806, end: 20250106
  2. XARELTO [Suspect]
     Active Substance: RIVAROXABAN
     Indication: Anticoagulant therapy

REACTIONS (8)
  - Urinary bladder haemorrhage [Recovering/Resolving]
  - Nephrolithiasis [Unknown]
  - Underdose [Unknown]
  - Prescribed underdose [Unknown]
  - Palpitations [Unknown]
  - Haematuria [Recovered/Resolved]
  - Haemoglobin decreased [Unknown]
  - Dysuria [Unknown]

NARRATIVE: CASE EVENT DATE: 20240806
